FAERS Safety Report 22228543 (Version 1)
Quarter: 2023Q2

REPORT INFORMATION
  Report Type: Spontaneous
  Country: US (occurrence: None)
  Receive Date: 20230418
  Receipt Date: 20230418
  Transmission Date: 20230722
  Serious: Yes (Hospitalization)
  Sender: FDA-Public Use
  Company Number: None

PATIENT
  Age: 51 Year
  Sex: Female

DRUGS (2)
  1. TOPAMAX [Suspect]
     Active Substance: TOPIRAMATE
  2. TRAMADOL [Suspect]
     Active Substance: TRAMADOL

REACTIONS (2)
  - Intentional self-injury [None]
  - Intentional product misuse [None]

NARRATIVE: CASE EVENT DATE: 20230330
